FAERS Safety Report 4930690-6 (Version None)
Quarter: 2006Q1

REPORT INFORMATION
  Report Type: 
  Country: None (occurrence: None)
  Receive Date: 20060302
  Receipt Date: 20060127
  Transmission Date: 20060701
  Serious: Yes (Other)
  Sender: FDA-Public Use
  Company Number: US-BRISTOL-MYERS SQUIBB COMPANY-13262456

PATIENT
  Age: 52 Year
  Sex: Female

DRUGS (8)
  1. CARBOPLATIN [Suspect]
     Indication: NON-SMALL CELL LUNG CANCER
     Route: 042
     Dates: start: 20060105, end: 20060105
  2. DOCETAXEL [Suspect]
     Indication: NON-SMALL CELL LUNG CANCER
     Route: 042
     Dates: start: 20060105, end: 20060105
  3. MEGACE [Concomitant]
     Dates: start: 20051013
  4. MAGNESIUM [Concomitant]
     Dates: start: 20051001
  5. DARBEPOETIN ALFA [Concomitant]
     Dates: start: 20051117
  6. OXYCODONE [Concomitant]
     Dates: start: 20050901
  7. FUROSEMIDE [Concomitant]
     Dates: start: 20051220
  8. POTASSIUM [Concomitant]

REACTIONS (1)
  - DEEP VEIN THROMBOSIS [None]
